FAERS Safety Report 24528810 (Version 1)
Quarter: 2024Q4

REPORT INFORMATION
  Report Type: Spontaneous
  Country: US (occurrence: None)
  Receive Date: 20241018
  Receipt Date: 20241018
  Transmission Date: 20250115
  Serious: Yes (Hospitalization)
  Sender: Public
  Company Number: None

PATIENT
  Sex: Female

DRUGS (1)
  1. TEZSPIRE [Suspect]
     Active Substance: TEZEPELUMAB-EKKO
     Indication: Asthma
     Dosage: OTHER STRENGTH : 210/1,.91 MG;?OTHER FREQUENCY : EVERY 28 DAYS;?
     Route: 058
     Dates: start: 202308

REACTIONS (2)
  - Fatigue [None]
  - Myocardial infarction [None]
